FAERS Safety Report 26129379 (Version 1)
Quarter: 2025Q4

REPORT INFORMATION
  Report Type: Spontaneous
  Country: US (occurrence: US)
  Receive Date: 20251208
  Receipt Date: 20251208
  Transmission Date: 20260118
  Serious: Yes (Hospitalization, Other)
  Sender: ALEXION PHARMACEUTICALS
  Company Number: US-AstraZeneca-CH-01006106A

PATIENT
  Sex: Female

DRUGS (1)
  1. SYMBICORT [Suspect]
     Active Substance: BUDESONIDE\FORMOTEROL FUMARATE DIHYDRATE
     Dosage: UNK
     Route: 065

REACTIONS (13)
  - Pneumonia [Unknown]
  - Sepsis [Unknown]
  - Neoplasm malignant [Unknown]
  - Lung neoplasm malignant [Unknown]
  - Memory impairment [Unknown]
  - Dysstasia [Unknown]
  - Hip arthroplasty [Unknown]
  - Illness [Unknown]
  - Cellulitis [Unknown]
  - Eye disorder [Unknown]
  - Limb discomfort [Unknown]
  - Product dose omission issue [Unknown]
  - Incorrect dose administered by device [Unknown]
